FAERS Safety Report 6999820-9 (Version None)
Quarter: 2010Q3

REPORT INFORMATION
  Report Type: 
  Country: None (occurrence: None)
  Receive Date: 20100920
  Receipt Date: 20100913
  Transmission Date: 20110219
  Serious: Yes (Death, Hospitalization, Other)
  Sender: FDA-Public Use
  Company Number: PHHY2010BR60961

PATIENT
  Age: 73 Year
  Sex: Male

DRUGS (3)
  1. GLEEVEC [Suspect]
     Indication: GASTROINTESTINAL STROMAL TUMOUR
     Dosage: 400 MG, UNK
     Route: 048
     Dates: start: 20060726
  2. GLEEVEC [Suspect]
     Dosage: 800 MG, UNK
     Route: 048
     Dates: start: 20100101, end: 20100501
  3. SUNITINIB MALATE [Concomitant]
     Dosage: UNK
     Dates: start: 20100817

REACTIONS (29)
  - ADRENAL DISORDER [None]
  - AORTIC ARTERIOSCLEROSIS [None]
  - AORTIC VALVE INCOMPETENCE [None]
  - ASTHENIA [None]
  - CARDIAC FAILURE [None]
  - CARDIOGENIC SHOCK [None]
  - CATHETER PLACEMENT [None]
  - DEATH [None]
  - DILATATION VENTRICULAR [None]
  - ECHOCARDIOGRAM ABNORMAL [None]
  - FISTULA [None]
  - GASTROINTESTINAL TOXICITY [None]
  - HEPATOMEGALY [None]
  - JAUNDICE [None]
  - LUNG CONSOLIDATION [None]
  - METASTASES TO LIVER [None]
  - MITRAL VALVE INCOMPETENCE [None]
  - MYOCARDIAL INFARCTION [None]
  - MYOCARDITIS [None]
  - NEOPLASM MALIGNANT [None]
  - ORCHIDECTOMY [None]
  - PLEURAL DISORDER [None]
  - PROSTATE CANCER [None]
  - PULMONARY HYPERTENSION [None]
  - RENAL DISORDER [None]
  - RENAL MASS [None]
  - SEPSIS [None]
  - SPINAL OSTEOARTHRITIS [None]
  - VENTRICULAR DYSFUNCTION [None]
